FAERS Safety Report 21591411 (Version 1)
Quarter: 2022Q4

REPORT INFORMATION
  Report Type: Spontaneous
  Country: US (occurrence: None)
  Receive Date: 20221111
  Receipt Date: 20221111
  Transmission Date: 20230112
  Serious: Yes (Life-Threatening, Hospitalization)
  Sender: FDA-Public Use
  Company Number: None

PATIENT
  Age: 73 Year
  Sex: Female
  Weight: 67 kg

DRUGS (1)
  1. JARDIANCE [Suspect]
     Active Substance: EMPAGLIFLOZIN
     Indication: Diabetes mellitus

REACTIONS (6)
  - Therapy interrupted [None]
  - Enterobacter test positive [None]
  - Septic shock [None]
  - Urinary tract infection [None]
  - Euglycaemic diabetic ketoacidosis [None]
  - Cardiac failure [None]

NARRATIVE: CASE EVENT DATE: 20221110
